FAERS Safety Report 8500522-8 (Version None)
Quarter: 2012Q3

REPORT INFORMATION
  Report Type: 
  Country: None (occurrence: None)
  Receive Date: 20120705
  Receipt Date: 20120705
  Transmission Date: 20120928
  Serious: No
  Sender: FDA-Public Use
  Company Number: None

PATIENT
  Age: 65 Year

DRUGS (1)
  1. IODIXANOL [Suspect]
     Dates: start: 20120509, end: 20120509

REACTIONS (1)
  - TYPE IV HYPERSENSITIVITY REACTION [None]
